FAERS Safety Report 24576086 (Version 2)
Quarter: 2024Q4

REPORT INFORMATION
  Report Type: Spontaneous
  Country: US (occurrence: US)
  Receive Date: 20241104
  Receipt Date: 20241108
  Transmission Date: 20250115
  Serious: No
  Sender: NOVARTIS
  Company Number: US-002147023-NVSC2024US209563

PATIENT

DRUGS (1)
  1. COSENTYX [Suspect]
     Active Substance: SECUKINUMAB
     Indication: Product used for unknown indication
     Dosage: 150 ML (1X) FOR 3 YEARS
     Route: 065

REACTIONS (5)
  - Fear of injection [Unknown]
  - Muscle strain [Unknown]
  - Stress [Unknown]
  - Product use complaint [Unknown]
  - Drug ineffective [Unknown]
